FAERS Safety Report 5838023-8 (Version None)
Quarter: 2008Q3

REPORT INFORMATION
  Report Type: 
  Country: None (occurrence: None)
  Receive Date: 20080808
  Receipt Date: 20080311
  Transmission Date: 20090109
  Serious: No
  Sender: FDA-Public Use
  Company Number: A0714632A

PATIENT
  Age: 39 Year
  Sex: Female

DRUGS (2)
  1. PAXIL [Suspect]
     Indication: PANIC DISORDER
     Dosage: 20MG PER DAY
     Route: 048
     Dates: start: 20060901
  2. NO CONCURRENT MEDICATION [Concomitant]

REACTIONS (2)
  - AMNESIA [None]
  - MENTAL IMPAIRMENT [None]
